FAERS Safety Report 4560719-9 (Version None)
Quarter: 2005Q1

REPORT INFORMATION
  Report Type: 
  Country: None (occurrence: None)
  Receive Date: 20050121
  Receipt Date: 20050112
  Transmission Date: 20050727
  Serious: Yes (Congenital Anomaly)
  Sender: FDA-Public Use
  Company Number: 2005-01-0746

PATIENT
  Age: 1 Day

DRUGS (4)
  1. REBETOL [Suspect]
     Indication: HEPATITIS C
     Dosage: ORAL
     Route: 048
  2. RIFADIN [Suspect]
     Indication: LYMPH NODE TUBERCULOSIS
     Dates: start: 20040426
  3. MYAMBUTOL [Concomitant]
  4. RIMIFON [Concomitant]

REACTIONS (9)
  - CONGENITAL ANOMALY [None]
  - CONGENITAL EYELID MALFORMATION [None]
  - DRUG EXPOSURE DURING PREGNANCY [None]
  - EAR MALFORMATION [None]
  - HAND DEFORMITY [None]
  - MATERNAL CONDITION AFFECTING FOETUS [None]
  - MUTAGENIC EFFECT [None]
  - PLACENTAL DISORDER [None]
  - TRANSMISSION OF DRUG VIA SEMEN [None]
